FAERS Safety Report 21533805 (Version 1)
Quarter: 2022Q4

REPORT INFORMATION
  Report Type: Spontaneous
  Country: US (occurrence: None)
  Receive Date: 20221031
  Receipt Date: 20221031
  Transmission Date: 20230113
  Serious: Yes (Hospitalization, Other)
  Sender: FDA-Public Use
  Company Number: None

PATIENT
  Age: 44 Year
  Sex: Female
  Weight: 97.5 kg

DRUGS (1)
  1. BEBTELOVIMAB [Suspect]
     Active Substance: BEBTELOVIMAB
     Indication: COVID-19
     Dosage: FREQUENCY : ONCE;?
     Route: 042
     Dates: start: 20221026, end: 20221026

REACTIONS (7)
  - Dyspnoea [None]
  - Back pain [None]
  - Headache [None]
  - Chest discomfort [None]
  - Swelling face [None]
  - Chest pain [None]
  - Oxygen saturation decreased [None]

NARRATIVE: CASE EVENT DATE: 20221026
